FAERS Safety Report 16986866 (Version 2)
Quarter: 2019Q4

REPORT INFORMATION
  Report Type: Report from Study
  Country: FR (occurrence: FR)
  Receive Date: 20191104
  Receipt Date: 20191119
  Transmission Date: 20200122
  Serious: Yes (Other)
  Sender: FDA-Public Use
  Company Number: FR-BEH-2019108825

PATIENT
  Age: 65 Year
  Sex: Male
  Weight: 65 kg

DRUGS (2)
  1. BERINERT [Suspect]
     Active Substance: HUMAN C1-ESTERASE INHIBITOR
     Indication: HEREDITARY ANGIOEDEMA
     Dosage: 100 INTERNATIONAL UNIT
     Route: 042
     Dates: start: 2008
  2. BERINERT [Suspect]
     Active Substance: HUMAN C1-ESTERASE INHIBITOR
     Indication: HEREDITARY ANGIOEDEMA
     Dosage: 100 INTERNATIONAL UNIT
     Route: 042
     Dates: start: 2008

REACTIONS (3)
  - Underdose [Unknown]
  - Therapeutic response delayed [Unknown]
  - Product preparation error [Unknown]

NARRATIVE: CASE EVENT DATE: 2008
